FAERS Safety Report 7769699-6 (Version None)
Quarter: 2011Q3

REPORT INFORMATION
  Report Type: 
  Country: None (occurrence: None)
  Receive Date: 20110922
  Receipt Date: 20100825
  Transmission Date: 20111222
  Serious: No
  Sender: FDA-Public Use
  Company Number: US-ASTRAZENECA-2007UW21522

PATIENT
  Age: 13680 Day
  Sex: Female
  Weight: 152.4 kg

DRUGS (11)
  1. SEROQUEL [Suspect]
     Dosage: 100 MG TO 400 MG
     Route: 048
     Dates: start: 20010329, end: 20061001
  2. HALDOL [Concomitant]
     Dates: start: 20030101
  3. WELLBUTRIN [Concomitant]
     Dates: start: 20000518
  4. TRILEPTAL [Concomitant]
     Dosage: 150 - 600 MG
     Dates: start: 20020329
  5. GLIPIZIDE [Concomitant]
     Dates: start: 20021206
  6. SEROQUEL [Suspect]
     Indication: BIPOLAR DISORDER
     Dosage: 25- 400 MG
     Route: 048
     Dates: start: 20000518
  7. DEPAKOTE [Concomitant]
     Dosage: 250 - 2000 MG
     Route: 048
     Dates: start: 20000518
  8. PAXIL [Concomitant]
     Route: 048
     Dates: start: 20000926
  9. PHENTERMINE [Concomitant]
     Indication: WEIGHT INCREASED
     Dates: start: 20020614, end: 20020618
  10. AMBIEN [Concomitant]
     Indication: INSOMNIA
     Dates: start: 20000926
  11. ABILIFY [Concomitant]
     Dates: start: 20070101

REACTIONS (3)
  - DIABETES MELLITUS [None]
  - OBESITY [None]
  - TYPE 2 DIABETES MELLITUS [None]
